FAERS Safety Report 17388032 (Version 1)
Quarter: 2020Q1

REPORT INFORMATION
  Report Type: Report from Study
  Country: US (occurrence: US)
  Receive Date: 20200206
  Receipt Date: 20200206
  Transmission Date: 20200409
  Serious: No
  Sender: FDA-Public Use
  Company Number: NVSC2020US030202

PATIENT
  Sex: Male

DRUGS (2)
  1. OMNITROPE [Suspect]
     Active Substance: SOMATROPIN
     Indication: HYPOPITUITARISM
     Dosage: 1.5 MG, OT (6 DAYS/WEEK)
     Route: 058
     Dates: start: 201812, end: 20200204
  2. OMNITROPE [Suspect]
     Active Substance: SOMATROPIN
     Dosage: 1.6 MG, OT (6 DAYS/WEEK)
     Route: 058

REACTIONS (1)
  - Therapeutic product effect incomplete [Unknown]
